FAERS Safety Report 17438974 (Version 1)
Quarter: 2020Q1

REPORT INFORMATION
  Report Type: Spontaneous
  Country: US (occurrence: US)
  Receive Date: 20200205
  Receipt Date: 20200205
  Transmission Date: 20200409
  Serious: No
  Sender: FDA-Public Use
  Company Number: None

PATIENT

DRUGS (3)
  1. HALDOL [Suspect]
     Active Substance: HALOPERIDOL
  2. DEPAKOTE [Suspect]
     Active Substance: DIVALPROEX SODIUM
  3. LIPITOR [Suspect]
     Active Substance: ATORVASTATIN CALCIUM

REACTIONS (11)
  - Hallucination [None]
  - Tremor [None]
  - Dry mouth [None]
  - Movement disorder [None]
  - Eating disorder [None]
  - Rash [None]
  - Product complaint [None]
  - Diabetes mellitus [None]
  - Alopecia [None]
  - Vision blurred [None]
  - Confusional state [None]
